FAERS Safety Report 9585519 (Version 2)
Quarter: 2013Q4

REPORT INFORMATION
  Report Type: Spontaneous
  Country: BR (occurrence: BR)
  Receive Date: 20131003
  Receipt Date: 20131003
  Transmission Date: 20140711
  Serious: Yes (Hospitalization, Other)
  Sender: FDA-Public Use
  Company Number: BR-BIOGENIDEC-2013BI045894

PATIENT
  Age: 69 Year
  Sex: Female

DRUGS (5)
  1. AVONEX [Suspect]
     Indication: MULTIPLE SCLEROSIS
     Route: 030
     Dates: start: 20120221, end: 20130304
  2. AVONEX [Suspect]
     Indication: MULTIPLE SCLEROSIS
     Route: 030
     Dates: start: 20130328, end: 20130718
  3. AVONEX [Suspect]
     Indication: MULTIPLE SCLEROSIS
     Route: 030
     Dates: start: 20130820
  4. LIPISTAT [Concomitant]
     Indication: BLOOD CHOLESTEROL INCREASED
  5. SOMALGIN CARDIO [Concomitant]
     Indication: ANTICOAGULANT THERAPY

REACTIONS (5)
  - Urinary tract infection [Recovered/Resolved]
  - Osteonecrosis [Recovered/Resolved]
  - Blood cholesterol increased [Unknown]
  - Pain in extremity [Unknown]
  - Pain [Unknown]
